FAERS Safety Report 6157635-8 (Version None)
Quarter: 2009Q2

REPORT INFORMATION
  Report Type: 
  Country: None (occurrence: None)
  Receive Date: 20090414
  Receipt Date: 20090414
  Transmission Date: 20091009
  Serious: Yes (Hospitalization)
  Sender: FDA-Public Use
  Company Number: None

PATIENT
  Age: 66 Year
  Sex: Female
  Weight: 78 kg

DRUGS (3)
  1. GEMCITABINE HCL [Suspect]
     Indication: NON-SMALL CELL LUNG CANCER STAGE IIIB
     Dosage: 400 MG/M2 Q2 WEEKS IV
     Route: 042
     Dates: start: 20090129, end: 20090312
  2. PEMETREXED [Suspect]
     Indication: NON-SMALL CELL LUNG CANCER STAGE IIIB
     Dosage: 1200 MG/M2 Q2 WEEKS IV
     Route: 042
     Dates: start: 20090129, end: 20090312
  3. BEVACIZUMAB [Suspect]
     Indication: NON-SMALL CELL LUNG CANCER STAGE IIIB
     Dosage: 10 MG/KG
     Dates: start: 20090129, end: 20090312

REACTIONS (4)
  - COUGH [None]
  - DYSPNOEA [None]
  - LUNG ADENOCARCINOMA [None]
  - MALIGNANT PLEURAL EFFUSION [None]
